FAERS Safety Report 5956202-6 (Version None)
Quarter: 2008Q4

REPORT INFORMATION
  Report Type: 
  Country: None (occurrence: None)
  Receive Date: 20081112
  Receipt Date: 20081104
  Transmission Date: 20090506
  Serious: Yes (Hospitalization)
  Sender: FDA-Public Use
  Company Number: MEDI-0007448

PATIENT
  Age: 6 Month
  Sex: Male
  Weight: 4.7 kg

DRUGS (2)
  1. SYNAGIS [Suspect]
     Dosage: 15 MG/KG, INTRAMUSCULAR
     Route: 030
     Dates: start: 20081003, end: 20081031
  2. SYNAGIS [Suspect]
     Dosage: 15 MG/KG, INTRAMUSCULAR
     Route: 030
     Dates: start: 20081003

REACTIONS (2)
  - PULMONARY CONGESTION [None]
  - RHINORRHOEA [None]
